FAERS Safety Report 5504621-4 (Version None)
Quarter: 2007Q4

REPORT INFORMATION
  Report Type: 
  Country: None (occurrence: None)
  Receive Date: 20071101
  Receipt Date: 20071026
  Transmission Date: 20080405
  Serious: No
  Sender: FDA-Public Use
  Company Number: US-BOEHRINGER INGELHEIM PHARMACEUTICALS, INC.-2007-BP-23433BP

PATIENT
  Sex: Male

DRUGS (4)
  1. FLOMAX [Suspect]
     Indication: BENIGN PROSTATIC HYPERPLASIA
     Route: 048
     Dates: start: 20061101
  2. BENTYL [Concomitant]
  3. AMBIEN [Concomitant]
  4. BUSPAR [Concomitant]

REACTIONS (1)
  - DRUG INEFFECTIVE [None]
